FAERS Safety Report 9147978 (Version 4)
Quarter: 2013Q4

REPORT INFORMATION
  Report Type: Report from Study
  Country: DE (occurrence: DE)
  Receive Date: 20130307
  Receipt Date: 20131227
  Transmission Date: 20140711
  Serious: Yes (Hospitalization)
  Sender: FDA-Public Use
  Company Number: DE-BRISTOL-MYERS SQUIBB COMPANY-17452749

PATIENT
  Age: 56 Year
  Sex: Male
  Weight: 90 kg

DRUGS (5)
  1. CETUXIMAB [Suspect]
     Indication: MALIGNANT NEOPLASM OF UNKNOWN PRIMARY SITE
     Dosage: RECENT DOSE:20FEB13
     Dates: start: 20130115
  2. PACLITAXEL [Suspect]
     Indication: MALIGNANT NEOPLASM OF UNKNOWN PRIMARY SITE
     Dosage: RECENT DOSE:20FEB13
     Dates: start: 20130115
  3. CARBOPLATIN [Suspect]
     Indication: MALIGNANT NEOPLASM OF UNKNOWN PRIMARY SITE
     Dosage: RECENT DOSE:20FEB13
     Dates: start: 20130115
  4. PREDNISONE [Concomitant]
     Indication: DYSPNOEA
     Route: 042
     Dates: start: 20130219
  5. BRICANYL [Concomitant]
     Indication: DYSPNOEA
     Dosage: 1DF: 50MG/ML
     Route: 058
     Dates: start: 20130219

REACTIONS (1)
  - Chronic obstructive pulmonary disease [Recovered/Resolved]
